FAERS Safety Report 25361499 (Version 1)
Quarter: 2025Q2

REPORT INFORMATION
  Report Type: Spontaneous
  Country: CZ (occurrence: CZ)
  Receive Date: 20250527
  Receipt Date: 20250527
  Transmission Date: 20250717
  Serious: Yes (Life-Threatening, Hospitalization, Other)
  Sender: MERCK SHARP & DOHME LLC
  Company Number: None

PATIENT
  Age: 53 Year
  Sex: Female
  Weight: 107 kg

DRUGS (4)
  1. KEYTRUDA [Suspect]
     Active Substance: PEMBROLIZUMAB
     Indication: Breast cancer female
     Route: 042
     Dates: start: 20241129, end: 20250411
  2. FRAXIPARINE FORTE 1ML [Concomitant]
     Dosage: 1-0-0
  3. EUTHYROX 137MCG [Concomitant]
     Dosage: 1-0-0, ON AN EMPTY STOMACH
     Route: 048
  4. TORECAN 6.5MG [Concomitant]
     Dosage: 1-1-1, FOR NAUSEA
     Route: 048

REACTIONS (4)
  - Immune-mediated hypophysitis [Not Recovered/Not Resolved]
  - Fatigue [Not Recovered/Not Resolved]
  - Asthenia [Not Recovered/Not Resolved]
  - Vomiting [Not Recovered/Not Resolved]

NARRATIVE: CASE EVENT DATE: 20250502
